FAERS Safety Report 9444109 (Version 3)
Quarter: 2014Q2

REPORT INFORMATION
  Report Type: Spontaneous
  Country: US (occurrence: US)
  Receive Date: 20130807
  Receipt Date: 20140401
  Transmission Date: 20141212
  Serious: Yes (Disabling)
  Sender: FDA-Public Use
  Company Number: US-ASTRAZENECA-2013SE58792

PATIENT
  Age: 63 Year
  Sex: Female
  Weight: 72.1 kg

DRUGS (5)
  1. NEXIUM [Suspect]
     Indication: PROPHYLAXIS AGAINST GASTROINTESTINAL ULCER
     Route: 048
     Dates: start: 2003, end: 201307
  2. NEXIUM [Suspect]
     Indication: NAUSEA
     Route: 048
     Dates: start: 2003, end: 201307
  3. MELOXICAM [Concomitant]
     Indication: ARTHRITIS
     Route: 048
     Dates: start: 2008
  4. BYSTOLIC [Concomitant]
     Indication: BLOOD PRESSURE ABNORMAL
     Route: 048
     Dates: start: 2012
  5. ARMOUR THYROID [Concomitant]
     Indication: HYPOTHYROIDISM
     Route: 048
     Dates: start: 201303

REACTIONS (7)
  - Faecal incontinence [Unknown]
  - Blood pressure abnormal [Unknown]
  - Hypothyroidism [Unknown]
  - Arthritis [Unknown]
  - Nausea [Unknown]
  - Drug dose omission [Not Recovered/Not Resolved]
  - Off label use [Unknown]
